FAERS Safety Report 18660177 (Version 1)
Quarter: 2020Q4

REPORT INFORMATION
  Report Type: Spontaneous
  Country: US (occurrence: US)
  Receive Date: 20201223
  Receipt Date: 20201223
  Transmission Date: 20210114
  Serious: No
  Sender: FDA-Public Use
  Company Number: US-AMGEN INC.-USASP2020208649

PATIENT
  Sex: Male

DRUGS (2)
  1. AIMOVIG [Suspect]
     Active Substance: ERENUMAB-AOOE
     Dosage: UNK, QMO
     Route: 065
     Dates: start: 2020
  2. AIMOVIG [Suspect]
     Active Substance: ERENUMAB-AOOE
     Indication: CLUSTER HEADACHE
     Dosage: UNK UNK, QMO
     Route: 065
     Dates: start: 2018, end: 2020

REACTIONS (1)
  - Off label use [Unknown]

NARRATIVE: CASE EVENT DATE: 2018
